FAERS Safety Report 8100429-4 (Version None)
Quarter: 2012Q1

REPORT INFORMATION
  Report Type: 
  Country: None (occurrence: None)
  Receive Date: 20120129
  Receipt Date: 20111101
  Transmission Date: 20120608
  Serious: No
  Sender: FDA-Public Use
  Company Number: US-ABBOTT-11P-163-0870023-00

PATIENT
  Sex: Female
  Weight: 83.99 kg

DRUGS (10)
  1. CIPROFLOXACIN [Suspect]
     Indication: URINARY TRACT INFECTION
     Dates: start: 20111001, end: 20111001
  2. CLONIDINE [Concomitant]
     Indication: HYPERTENSION
  3. LORTAB [Concomitant]
     Indication: ARTHRALGIA
  4. PREDNISONE TAB [Concomitant]
     Indication: RHEUMATOID ARTHRITIS
     Dosage: WEANING
  5. GLIPIZIDE [Concomitant]
     Indication: DIABETES MELLITUS
  6. METHOTREXATE [Suspect]
     Indication: RHEUMATOID ARTHRITIS
     Dates: end: 20111001
  7. METOPROLOL TARTRATE [Concomitant]
     Indication: HYPERTENSION
  8. HUMIRA [Suspect]
     Indication: RHEUMATOID ARTHRITIS
     Dates: start: 20100901, end: 20111007
  9. SULFASALAZINE [Concomitant]
     Indication: RHEUMATOID ARTHRITIS
  10. FOLIC ACID [Concomitant]
     Indication: VITAMIN SUPPLEMENTATION

REACTIONS (8)
  - BLOOD GLUCOSE INCREASED [None]
  - URINARY TRACT INFECTION [None]
  - HEART RATE INCREASED [None]
  - DYSURIA [None]
  - URINE ODOUR ABNORMAL [None]
  - BACK PAIN [None]
  - RHEUMATOID ARTHRITIS [None]
  - BLOOD PRESSURE INCREASED [None]
